FAERS Safety Report 13748261 (Version 1)
Quarter: 2017Q3

REPORT INFORMATION
  Report Type: Spontaneous
  Country: FR (occurrence: FR)
  Receive Date: 20170713
  Receipt Date: 20170713
  Transmission Date: 20171127
  Serious: Yes (Hospitalization)
  Sender: FDA-Public Use
  Company Number: FR-009507513-1707FRA001533

PATIENT
  Age: 7 Year
  Sex: Male
  Weight: 26 kg

DRUGS (2)
  1. CELESTENE [Suspect]
     Active Substance: BETAMETHASONE
     Indication: COUGH
     Dosage: 50 DROPS BID
     Route: 048
     Dates: start: 20170616
  2. POLERY ENFANT [Suspect]
     Active Substance: PHOLCODINE\SISYMBRIUM OFFICINALE WHOLE
     Indication: COUGH
     Dosage: 2 DF, TID
     Route: 048
     Dates: start: 20170616

REACTIONS (3)
  - Urticaria [Unknown]
  - Eyelid oedema [Unknown]
  - Skin reaction [Unknown]

NARRATIVE: CASE EVENT DATE: 20170617
